FAERS Safety Report 6125265-X (Version None)
Quarter: 2009Q1

REPORT INFORMATION
  Report Type: 
  Country: None (occurrence: None)
  Receive Date: 20090320
  Receipt Date: 20090311
  Transmission Date: 20090719
  Serious: Yes (Hospitalization)
  Sender: FDA-Public Use
  Company Number: PHHY2009FR04190

PATIENT
  Sex: Male

DRUGS (8)
  1. EXELON [Suspect]
     Indication: CEREBRAL ATROPHY
     Dosage: 4.6 MG, DAILY
     Route: 062
     Dates: start: 20081201, end: 20090101
  2. NORSET [Concomitant]
     Dosage: 30 MG, DAILY
     Route: 048
  3. TIAPRIDAL [Concomitant]
     Dosage: 20 DROPS DAILY
     Route: 048
  4. LASIX [Concomitant]
     Dosage: UNK
  5. DILTIAZEM HCL [Concomitant]
     Dosage: UNK
  6. VASTAREL [Concomitant]
     Dosage: UNK
  7. KARDEGIC [Concomitant]
     Dosage: UNK
  8. LESCOL [Concomitant]
     Dosage: UNK

REACTIONS (6)
  - AGGRESSION [None]
  - AGITATION [None]
  - ANXIETY [None]
  - INSOMNIA [None]
  - POOR QUALITY SLEEP [None]
  - RESTLESSNESS [None]
